FAERS Safety Report 16969437 (Version 1)
Quarter: 2019Q4

REPORT INFORMATION
  Report Type: Spontaneous
  Country: US (occurrence: US)
  Receive Date: 20190910
  Receipt Date: 20190910
  Transmission Date: 20200122
  Serious: Yes (Hospitalization)
  Sender: FDA-Public Use
  Company Number: None

PATIENT
  Age: 9 Year
  Sex: Male
  Weight: 20.4 kg

DRUGS (4)
  1. CAMPTOSAR [Suspect]
     Active Substance: IRINOTECAN HYDROCHLORIDE
     Dates: end: 20190830
  2. CYCLOPHOSPHAMIDE. [Suspect]
     Active Substance: CYCLOPHOSPHAMIDE
     Dates: end: 20190715
  3. DACTINOMYCIN [Suspect]
     Active Substance: DACTINOMYCIN
     Dates: end: 20190715
  4. VINCRISTINE SULFATE. [Suspect]
     Active Substance: VINCRISTINE SULFATE
     Dates: end: 20190904

REACTIONS (11)
  - Stomatitis [None]
  - Oral candidiasis [None]
  - Vomiting [None]
  - Radiation injury [None]
  - Dyskinesia [None]
  - Therapeutic response shortened [None]
  - Nausea [None]
  - Pyrexia [None]
  - Hypophagia [None]
  - Drooling [None]
  - Oral pain [None]

NARRATIVE: CASE EVENT DATE: 20190904
